FAERS Safety Report 6016929-7 (Version None)
Quarter: 2008Q4

REPORT INFORMATION
  Report Type: 
  Country: None (occurrence: None)
  Receive Date: 20081218
  Receipt Date: 20081210
  Transmission Date: 20090506
  Serious: Yes (Hospitalization)
  Sender: FDA-Public Use
  Company Number: 2008-04060

PATIENT
  Age: 70 Year
  Sex: Male
  Weight: 92.1 kg

DRUGS (14)
  1. VELCADE [Suspect]
     Indication: MULTIPLE MYELOMA
     Dosage: 1.3 MG/M2, IV BOLUS
     Route: 040
     Dates: start: 20081006, end: 20081020
  2. DEXAMETHASONE TAB [Concomitant]
     Indication: MULTIPLE MYELOMA
     Dosage: 20 MG, ORAL
     Route: 048
     Dates: start: 20080917, end: 20081020
  3. TOPROL XL (METOPROLOL SSUCCINATE) [Concomitant]
  4. ZOCOR [Concomitant]
  5. AMIODARONE HCL [Concomitant]
  6. ALTACE [Concomitant]
  7. DIGOXIN [Concomitant]
  8. SYNTHROID [Concomitant]
  9. ASPIRIN [Concomitant]
  10. DURAGESIC-100 [Concomitant]
  11. ACETAMINOPHEN AND OXYCODONE HCL [Concomitant]
  12. COMPAZINE [Concomitant]
  13. ALLOPURINOL [Concomitant]
  14. THALIDOMIDE [Suspect]
     Indication: MULTIPLE MYELOMA
     Dosage: 100 MG
     Dates: start: 20081015

REACTIONS (6)
  - HEPATIC CYST [None]
  - HYPERSOMNIA [None]
  - ILEUS PARALYTIC [None]
  - SINUSITIS [None]
  - SPLENIC GRANULOMA [None]
  - SPUTUM CULTURE POSITIVE [None]
